FAERS Safety Report 4724252-3 (Version None)
Quarter: 2005Q3

REPORT INFORMATION
  Report Type: 
  Country: None (occurrence: None)
  Receive Date: 20050721
  Receipt Date: 20050708
  Transmission Date: 20060218
  Serious: Yes (Other)
  Sender: FDA-Public Use
  Company Number: GBWYE794904JUL05

PATIENT
  Age: 32 Year
  Sex: Female

DRUGS (1)
  1. PREMIQUE     (CONJUGATED ESTROGENS/MEDROXYPROGESTERONE ACETATE) [Suspect]
     Indication: ENDOMETRIOSIS
     Dosage: 5MG ORAL
     Route: 048
     Dates: start: 20041110, end: 20050201

REACTIONS (2)
  - BONE DENSITY DECREASED [None]
  - HAEMORRHAGE [None]
